FAERS Safety Report 5750281-7 (Version None)
Quarter: 2008Q2

REPORT INFORMATION
  Report Type: 
  Country: None (occurrence: None)
  Receive Date: 20080522
  Receipt Date: 20080522
  Transmission Date: 20081010
  Serious: Yes (Other)
  Sender: FDA-Public Use
  Company Number: None

PATIENT
  Sex: Female
  Weight: 56.246 kg

DRUGS (2)
  1. SERTRALINE [Suspect]
     Indication: ANXIETY
     Dosage: .25 1 DAILY PO
     Route: 048
     Dates: start: 20070320, end: 20080311
  2. SERTRALINE [Suspect]
     Indication: MIGRAINE
     Dosage: .25 1 DAILY PO
     Route: 048
     Dates: start: 20070320, end: 20080311

REACTIONS (7)
  - DRY MOUTH [None]
  - EMOTIONAL DISORDER [None]
  - FEELING ABNORMAL [None]
  - MOOD SWINGS [None]
  - NIGHT SWEATS [None]
  - PANIC ATTACK [None]
  - PHARMACEUTICAL PRODUCT COMPLAINT [None]
